FAERS Safety Report 12779331 (Version 1)
Quarter: 2016Q3

REPORT INFORMATION
  Report Type: Spontaneous
  Country: FR (occurrence: FR)
  Receive Date: 20160926
  Receipt Date: 20160926
  Transmission Date: 20161109
  Serious: Yes (Hospitalization)
  Sender: FDA-Public Use
  Company Number: FR-ACCORD-044402

PATIENT
  Age: 58 Year
  Sex: Female
  Weight: 68 kg

DRUGS (8)
  1. ALDACTAZINE [Concomitant]
     Active Substance: ALTHIAZIDE\SPIRONOLACTONE
  2. CISPLATIN ACCORD [Suspect]
     Active Substance: CISPLATIN
     Indication: LUNG ADENOCARCINOMA STAGE IV
     Dosage: RECEIVED ON DAY 01 OF COURSE 01 ON 19-MAY-2016.
     Route: 042
     Dates: start: 20160519
  3. EMEND [Concomitant]
     Active Substance: APREPITANT
     Indication: PREMEDICATION
     Dosage: DOSE: 125 MG ON DAY1 AND AT 80 MG ON DAY 2 AND DAY 3
  4. CORTANCYL [Concomitant]
     Active Substance: PREDNISONE
     Dosage: DOSE: 60 MG ON DAY 1 AND DAY 3
  5. OMEPRAZOLE. [Concomitant]
     Active Substance: OMEPRAZOLE
     Dates: start: 20160519
  6. ZOPHREN [Concomitant]
     Active Substance: ONDANSETRON
     Indication: PREMEDICATION
     Dosage: DOSE: 16 MG ON DAY 1 AND DAY 2
  7. SODIUM BICARBONATE. [Concomitant]
     Active Substance: SODIUM BICARBONATE
     Dates: start: 20160519
  8. ALIMTA [Suspect]
     Active Substance: PEMETREXED DISODIUM
     Indication: LUNG ADENOCARCINOMA STAGE IV
     Dosage: RECEIVED ON DAY 01 OF COURSE 01 ON 19-MAY-2016.
     Route: 042
     Dates: start: 20160519

REACTIONS (3)
  - Sepsis syndrome [Unknown]
  - Intestinal perforation [Recovered/Resolved with Sequelae]
  - Diverticulitis [Recovered/Resolved]

NARRATIVE: CASE EVENT DATE: 20160527
